FAERS Safety Report 15275354 (Version 3)
Quarter: 2019Q1

REPORT INFORMATION
  Report Type: Report from Study
  Country: US (occurrence: US)
  Receive Date: 20180814
  Receipt Date: 20190306
  Transmission Date: 20190417
  Serious: Yes (Hospitalization, Other)
  Sender: FDA-Public Use
  Company Number: US-SA-2018SA220453

PATIENT
  Age: 80 Year
  Sex: Male

DRUGS (9)
  1. NOVOLIN R [Concomitant]
     Active Substance: INSULIN HUMAN
     Dosage: 20 U, TID
  2. VITAMIN D [Concomitant]
     Active Substance: CHOLECALCIFEROL
  3. ASPIRIN [ACETYLSALICYLIC ACID] [Concomitant]
     Active Substance: ASPIRIN
     Dosage: UNK UNK, UNK
  4. SOTALOL. [Concomitant]
     Active Substance: SOTALOL
     Dosage: UNK UNK, UNK
  5. LISINOPRIL. [Concomitant]
     Active Substance: LISINOPRIL
     Dosage: UNK UNK, UNK
  6. FLUCONAZOLE. [Concomitant]
     Active Substance: FLUCONAZOLE
     Dosage: UNK UNK, UNK
  7. INSULIN GLARGINE [Suspect]
     Active Substance: INSULIN GLARGINE
     Indication: TYPE 2 DIABETES MELLITUS
     Dosage: 40 U, HS
     Route: 058
  8. NITRO [SILDENAFIL CITRATE] [Concomitant]
     Dosage: UNK UNK, UNK
  9. ATORVASTATIN [Concomitant]
     Active Substance: ATORVASTATIN
     Dosage: UNK UNK, UNK

REACTIONS (5)
  - Carotid artery disease [Not Recovered/Not Resolved]
  - Amnesia [Unknown]
  - Aortic valve disease [Not Recovered/Not Resolved]
  - Seizure [Recovered/Resolved]
  - Blood glucose fluctuation [Recovered/Resolved]
